FAERS Safety Report 8017729-9 (Version None)
Quarter: 2012Q1

REPORT INFORMATION
  Report Type: 
  Country: None (occurrence: None)
  Receive Date: 20120103
  Receipt Date: 20111228
  Transmission Date: 20120608
  Serious: No
  Sender: FDA-Public Use
  Company Number: US-PFIZER INC-2011314874

PATIENT

DRUGS (2)
  1. LIPITOR [Suspect]
     Dosage: 40 MG, UNK (80MG HALF TABLETS )
  2. SIMVASTATIN [Suspect]
     Dosage: UNK

REACTIONS (3)
  - LIP PAIN [None]
  - RASH [None]
  - LIP SWELLING [None]
